FAERS Safety Report 9464936 (Version 1)
Quarter: 2013Q3

REPORT INFORMATION
  Report Type: Spontaneous
  Country: DE (occurrence: DE)
  Receive Date: 20130819
  Receipt Date: 20130819
  Transmission Date: 20140515
  Serious: Yes (Other)
  Sender: FDA-Public Use
  Company Number: PHHY2013DE087949

PATIENT
  Age: 29 Year
  Sex: Female
  Weight: 48 kg

DRUGS (1)
  1. TEGRETAL [Suspect]
     Indication: EPILEPSY
     Dosage: 400 MG, TWICE DAILY

REACTIONS (3)
  - Premature labour [Unknown]
  - Glucose tolerance test [Unknown]
  - Exposure during pregnancy [Unknown]
